FAERS Safety Report 9550633 (Version 1)
Quarter: 2013Q3

REPORT INFORMATION
  Report Type: Spontaneous
  Country: US (occurrence: US)
  Receive Date: 20130924
  Receipt Date: 20130924
  Transmission Date: 20140515
  Serious: No
  Sender: FDA-Public Use
  Company Number: US-SANOFI-AVENTIS-2013SA010618

PATIENT
  Age: 49 Year
  Sex: Female
  Weight: 81.64 kg

DRUGS (8)
  1. AUBAGIO [Suspect]
     Indication: MULTIPLE SCLEROSIS
     Route: 048
     Dates: start: 20130128
  2. EXELON [Concomitant]
     Indication: MULTIPLE SCLEROSIS
  3. EFEXOR [Concomitant]
     Indication: MENTAL DISORDER
     Dosage: FREQUENCY:2 PER DAILY
  4. XALATAN [Concomitant]
     Indication: GLAUCOMA
  5. AMBIEN [Concomitant]
     Indication: INSOMNIA
  6. LAMICTAL [Concomitant]
     Indication: MENTAL DISORDER
  7. NEBIVOLOL [Concomitant]
     Indication: CARDIAC DISORDER
     Dosage: DOSE AND FREQUENCY: 5 MG AM/ 10 MG PM
  8. DIURETICS [Concomitant]
     Indication: CARDIAC DISORDER

REACTIONS (9)
  - Vomiting [Recovered/Resolved]
  - Vomiting projectile [Recovered/Resolved]
  - Nausea [Not Recovered/Not Resolved]
  - Alopecia [Not Recovered/Not Resolved]
  - Diarrhoea [Not Recovered/Not Resolved]
  - Hypoaesthesia [Not Recovered/Not Resolved]
  - Paraesthesia [Not Recovered/Not Resolved]
  - Drug dose omission [Unknown]
  - Wrong technique in drug usage process [Unknown]
